FAERS Safety Report 10161738 (Version 1)
Quarter: 2014Q2

REPORT INFORMATION
  Report Type: Spontaneous
  Country: US (occurrence: None)
  Receive Date: 20140508
  Receipt Date: 20140508
  Transmission Date: 20141212
  Serious: Yes (Other)
  Sender: FDA-Public Use
  Company Number: None

PATIENT
  Age: 81 Year
  Sex: Male

DRUGS (1)
  1. APRISO [Suspect]
     Indication: COLITIS
     Route: 048
     Dates: start: 20140328, end: 20140501

REACTIONS (3)
  - Dysphagia [None]
  - Product physical issue [None]
  - Productive cough [None]
